FAERS Safety Report 18663339 (Version 2)
Quarter: 2024Q2

REPORT INFORMATION
  Report Type: Spontaneous
  Country: IT (occurrence: IT)
  Receive Date: 20201224
  Receipt Date: 20240411
  Transmission Date: 20240716
  Serious: Yes (Other)
  Sender: FDA-Public Use
  Company Number: IT-BRISTOL-MYERS SQUIBB COMPANY-BMS-2020-108830

PATIENT
  Age: 58 Year
  Sex: Female

DRUGS (4)
  1. IPILIMUMAB [Suspect]
     Active Substance: IPILIMUMAB
     Indication: Lung neoplasm malignant
     Dosage: 3 MILLIGRAM/KILOGRAM, Q3WK (FOR 4 CYCLES)
     Route: 042
  2. COBIMETINIB [Suspect]
     Active Substance: COBIMETINIB
     Indication: Hepatic cancer
     Dosage: 60 MILLIGRAM (PER OS/DIE FOR 3 WEEKS THEN 1 WEEK PAUSE)
     Route: 048
  3. VEMURAFENIB [Suspect]
     Active Substance: VEMURAFENIB
     Indication: Hepatic cancer
     Dosage: 1920 MILLIGRAM (PER OS/DIE FOR 3 MONTHS)
     Route: 048
  4. VEMURAFENIB [Suspect]
     Active Substance: VEMURAFENIB
     Dosage: 1440 MILLIGRAM (PER OS/DIE)
     Route: 048

REACTIONS (1)
  - Osteonecrosis of jaw [Recovered/Resolved]
